FAERS Safety Report 5588761-X (Version None)
Quarter: 2008Q1

REPORT INFORMATION
  Report Type: 
  Country: None (occurrence: None)
  Receive Date: 20080111
  Receipt Date: 20080103
  Transmission Date: 20080703
  Serious: Yes (Other)
  Sender: FDA-Public Use
  Company Number: B0401053A

PATIENT
  Sex: Male

DRUGS (2)
  1. SEROXAT [Suspect]
     Indication: PANIC ATTACK
     Route: 065
     Dates: start: 19990910
  2. PAROXETINE HYDROCHLORIDE [Suspect]
     Route: 048
     Dates: start: 20040101

REACTIONS (13)
  - AGITATION [None]
  - CONFUSIONAL STATE [None]
  - DISTURBANCE IN ATTENTION [None]
  - DRUG WITHDRAWAL SYNDROME [None]
  - FATIGUE [None]
  - HYPERHIDROSIS [None]
  - LETHARGY [None]
  - MEMORY IMPAIRMENT [None]
  - OBSESSIVE THOUGHTS [None]
  - SLEEP DISORDER [None]
  - SUICIDAL IDEATION [None]
  - TREMOR [None]
  - WEIGHT INCREASED [None]
